FAERS Safety Report 13121534 (Version 1)
Quarter: 2017Q1

REPORT INFORMATION
  Report Type: Spontaneous
  Country: US (occurrence: US)
  Receive Date: 20170114
  Receipt Date: 20170114
  Transmission Date: 20170428
  Serious: Yes (Other)
  Sender: FDA-Public Use
  Company Number: None

PATIENT
  Age: 24 Year
  Sex: Female
  Weight: 65.25 kg

DRUGS (7)
  1. MULTIVITAMIN [Concomitant]
     Active Substance: VITAMINS
  2. L-LYSINE [Concomitant]
     Active Substance: LYSINE
  3. OSELTAMIVIR PHOSPHATE. [Suspect]
     Active Substance: OSELTAMIVIR PHOSPHATE
     Indication: INFLUENZA
     Dosage: ?          QUANTITY:10 CAPSULE(S);?
     Route: 048
     Dates: start: 20170110, end: 20170114
  4. CLONAZEPAM. [Concomitant]
     Active Substance: CLONAZEPAM
  5. LAMOTRIGINE. [Concomitant]
     Active Substance: LAMOTRIGINE
  6. FISH OIL [Concomitant]
     Active Substance: FISH OIL
  7. LITHIUM XR [Concomitant]

REACTIONS (3)
  - Delirium [None]
  - Confusional state [None]
  - Bipolar disorder [None]

NARRATIVE: CASE EVENT DATE: 20170113
